FAERS Safety Report 4333307-7 (Version None)
Quarter: 2004Q2

REPORT INFORMATION
  Report Type: 
  Country: None (occurrence: None)
  Receive Date: 20040401
  Receipt Date: 20040324
  Transmission Date: 20050107
  Serious: Yes (Disabling, Other)
  Sender: FDA-Public Use
  Company Number: 2004-03-1704

PATIENT
  Sex: Male

DRUGS (4)
  1. PEG-INTRON [Suspect]
     Indication: HEPATITIS C
     Dosage: SEE IMAGE
     Route: 058
     Dates: start: 20020901, end: 20040201
  2. PEG-INTRON [Suspect]
     Indication: HEPATITIS C
     Dosage: SEE IMAGE
     Route: 058
     Dates: start: 20020901
  3. PEG-INTRON [Suspect]
     Indication: HEPATITIS C
     Dosage: SEE IMAGE
     Route: 058
     Dates: start: 20040201
  4. ZOFRAN [Concomitant]

REACTIONS (7)
  - ARTHRALGIA [None]
  - ASTHMA [None]
  - INSOMNIA [None]
  - LUNG DISORDER [None]
  - MALAISE [None]
  - NAUSEA [None]
  - SINUSITIS [None]
